FAERS Safety Report 4409565-7 (Version None)
Quarter: 2004Q3

REPORT INFORMATION
  Report Type: 
  Country: None (occurrence: None)
  Receive Date: 20040727
  Receipt Date: 20040727
  Transmission Date: 20050211
  Serious: Yes (Other)
  Sender: FDA-Public Use
  Company Number: None

PATIENT
  Age: 61 Year
  Sex: Male
  Weight: 76 kg

DRUGS (1)
  1. DROTRECOGIN ALFA 5MG VIALS LILLY [Suspect]
     Indication: SEPTIC SHOCK
     Dosage: 24 MCG/KG/HR
     Dates: start: 20040719, end: 20040720

REACTIONS (2)
  - BRAIN DEATH [None]
  - CEREBRAL HAEMORRHAGE [None]
